FAERS Safety Report 13519765 (Version 1)
Quarter: 2017Q2

REPORT INFORMATION
  Report Type: Spontaneous
  Country: US (occurrence: CL)
  Receive Date: 20170506
  Receipt Date: 20170506
  Transmission Date: 20170830
  Serious: Yes (Death, Other)
  Sender: FDA-Public Use
  Company Number: US-AMGEN-CHLSP2017069141

PATIENT
  Sex: Female

DRUGS (2)
  1. FILGRASTIM [Suspect]
     Active Substance: FILGRASTIM
     Indication: INFANTILE GENETIC AGRANULOCYTOSIS
     Dosage: 15 MUG/KG, QD
     Route: 065
     Dates: start: 1997
  2. FILGRASTIM [Suspect]
     Active Substance: FILGRASTIM
     Dosage: 37.5 MUG/KG, QD
     Route: 065

REACTIONS (2)
  - Acute myeloid leukaemia [Fatal]
  - Drug effect incomplete [Unknown]
